FAERS Safety Report 7400385-8 (Version None)
Quarter: 2011Q2

REPORT INFORMATION
  Report Type: 
  Country: None (occurrence: None)
  Receive Date: 20110407
  Receipt Date: 20110329
  Transmission Date: 20111010
  Serious: Yes (Hospitalization, Other)
  Sender: FDA-Public Use
  Company Number: US-MERCK-1010USA03213

PATIENT
  Age: 58 Year
  Sex: Female
  Weight: 75 kg

DRUGS (15)
  1. TOPROL-XL [Concomitant]
     Indication: HYPERTENSION
     Route: 048
     Dates: start: 19950101
  2. VITAMIN D (UNSPECIFIED) [Concomitant]
     Route: 048
     Dates: start: 19950101
  3. CALCIUM (UNSPECIFIED) [Concomitant]
     Route: 048
     Dates: start: 19950101
  4. ZETIA [Concomitant]
     Indication: BLOOD CHOLESTEROL INCREASED
     Route: 048
     Dates: start: 19950101
  5. MAGNESIUM (UNSPECIFIED) [Concomitant]
     Route: 048
     Dates: start: 19950101
  6. FOSAMAX [Suspect]
     Indication: OSTEOPENIA
     Dosage: PT REPORTED ^20 MG ORAL TAB^
     Route: 048
     Dates: start: 19970101, end: 20080101
  7. FOSAMAX [Suspect]
     Route: 048
     Dates: start: 20000217
  8. CENTRUM [Concomitant]
     Dosage: ONE PER DAY
     Route: 048
  9. HYDROCHLOROTHIAZIDE [Concomitant]
     Indication: HYPERTENSION
     Route: 048
     Dates: start: 19950101
  10. OMEGA-3 MARINE TRIGLYCERIDES [Concomitant]
     Route: 048
     Dates: start: 19950101
  11. ZINC (UNSPECIFIED) [Concomitant]
     Route: 048
  12. FOSAMAX [Suspect]
     Route: 048
     Dates: start: 20010219
  13. VITAMIN B (UNSPECIFIED) [Concomitant]
     Route: 048
     Dates: start: 19950101
  14. SIMVASTATIN [Concomitant]
     Indication: BLOOD CHOLESTEROL INCREASED
     Route: 048
     Dates: start: 19950101
  15. TRICOR [Concomitant]
     Indication: BLOOD CHOLESTEROL INCREASED
     Route: 048
     Dates: start: 19950101

REACTIONS (68)
  - OSTEONECROSIS [None]
  - FALL [None]
  - ANXIETY [None]
  - LUMBAR RADICULOPATHY [None]
  - BACK PAIN [None]
  - ARTHROPATHY [None]
  - VAGINAL DISORDER [None]
  - NEUROMA [None]
  - GAIT DISTURBANCE [None]
  - ACQUIRED CLAW TOE [None]
  - STRESS FRACTURE [None]
  - MUSCULOSKELETAL PAIN [None]
  - WEIGHT DECREASED [None]
  - TINNITUS [None]
  - HYPERSENSITIVITY [None]
  - GASTRITIS [None]
  - ABDOMINAL DISTENSION [None]
  - BREAST DISORDER [None]
  - JOINT INJURY [None]
  - DIVERTICULUM [None]
  - INTERMITTENT CLAUDICATION [None]
  - SCIATICA [None]
  - PALPITATIONS [None]
  - PAIN IN EXTREMITY [None]
  - WEIGHT INCREASED [None]
  - GASTROOESOPHAGEAL REFLUX DISEASE [None]
  - FIBULA FRACTURE [None]
  - ASTHMA [None]
  - CHEST PAIN [None]
  - BALANCE DISORDER [None]
  - DRUG HYPERSENSITIVITY [None]
  - DEPRESSION [None]
  - LUMBAR SPINAL STENOSIS [None]
  - HAEMORRHOIDS [None]
  - LOCALISED INFECTION [None]
  - HERPES ZOSTER [None]
  - COLONIC POLYP [None]
  - ABDOMINAL DISCOMFORT [None]
  - PLANTAR FASCIITIS [None]
  - OEDEMA PERIPHERAL [None]
  - MUSCULAR DYSTROPHY [None]
  - MITRAL VALVE PROLAPSE [None]
  - INTERVERTEBRAL DISC DEGENERATION [None]
  - ABDOMINAL PAIN UPPER [None]
  - INTERVERTEBRAL DISC DISORDER [None]
  - SPINAL CORD COMPRESSION [None]
  - NAUSEA [None]
  - CORONARY ARTERY DISEASE [None]
  - HIP FRACTURE [None]
  - LACERATION [None]
  - INAPPROPRIATE SCHEDULE OF DRUG ADMINISTRATION [None]
  - URINARY TRACT INFECTION [None]
  - MYOSITIS [None]
  - MUSCULAR WEAKNESS [None]
  - FOOT FRACTURE [None]
  - CHEST DISCOMFORT [None]
  - FEMUR FRACTURE [None]
  - DECREASED APPETITE [None]
  - BACK INJURY [None]
  - DYSAESTHESIA [None]
  - DRY MOUTH [None]
  - SPINAL CORD DISORDER [None]
  - BURSITIS [None]
  - BLOOD TRIGLYCERIDES INCREASED [None]
  - NODULE [None]
  - HYPERLIPIDAEMIA [None]
  - FLAT AFFECT [None]
  - CERVICAL SPINAL STENOSIS [None]
